FAERS Safety Report 24001161 (Version 2)
Quarter: 2024Q3

REPORT INFORMATION
  Report Type: Spontaneous
  Country: US (occurrence: US)
  Receive Date: 20240621
  Receipt Date: 20240722
  Transmission Date: 20241017
  Serious: No
  Sender: BLUEPRINT MEDICINES
  Company Number: US-Blueprint Medicines Corporation-3932

PATIENT
  Sex: Female

DRUGS (1)
  1. AYVAKIT [Suspect]
     Active Substance: AVAPRITINIB
     Indication: Systemic mastocytosis
     Route: 065
     Dates: start: 20240406

REACTIONS (9)
  - Peripheral swelling [Unknown]
  - Dizziness [Unknown]
  - Swelling of eyelid [Unknown]
  - Eyelids pruritus [Unknown]
  - Visual impairment [Unknown]
  - White blood cell disorder [Recovering/Resolving]
  - Red blood cell count increased [Unknown]
  - Fluid retention [Unknown]
  - Pruritus [Unknown]
